FAERS Safety Report 7820401-9 (Version None)
Quarter: 2011Q4

REPORT INFORMATION
  Report Type: 
  Country: None (occurrence: None)
  Receive Date: 20111018
  Receipt Date: 20111003
  Transmission Date: 20120403
  Serious: Yes (Hospitalization)
  Sender: FDA-Public Use
  Company Number: JP-ROCHE-767627

PATIENT
  Sex: Female
  Weight: 53.5 kg

DRUGS (8)
  1. SELBEX [Concomitant]
     Dosage: BEGINNING OF DOSAGE DAY: TRIAL PREINITIATION
     Route: 048
  2. CYTOTEC [Concomitant]
     Dosage: BEGINNING OF DOSAGE DAY: TRIAL PREINITIATION
     Route: 048
  3. FAMOTIDINE [Concomitant]
     Route: 048
  4. KETOPROFEN [Concomitant]
     Dosage: SINGLE USE BEGINNING OF DOSAGE DAY: TRIAL PREINITIATION, FORM: TAPE
     Route: 061
  5. OCRELIZUMAB [Suspect]
     Indication: RHEUMATOID ARTHRITIS
     Route: 042
     Dates: start: 20090930, end: 20091014
  6. ACTEMRA [Suspect]
     Indication: RHEUMATOID ARTHRITIS
     Route: 042
     Dates: start: 20101022, end: 20110218
  7. CELECOXIB [Concomitant]
     Route: 048
  8. VOLTAREN [Concomitant]
     Dosage: SINGLE USE BEGINNING OF DOSAGE DAY: TRIAL PREINITIATION, FORM:SUPPOSITORIAE RECTALE
     Route: 054

REACTIONS (1)
  - PLEURAL INFECTION BACTERIAL [None]
